FAERS Safety Report 7473513-6 (Version None)
Quarter: 2011Q2

REPORT INFORMATION
  Report Type: 
  Country: None (occurrence: None)
  Receive Date: 20110511
  Receipt Date: 20110506
  Transmission Date: 20111010
  Serious: Yes (Hospitalization, Other)
  Sender: FDA-Public Use
  Company Number: CA-US-EMD SERONO, INC.-230130J10CAN

PATIENT
  Sex: Female

DRUGS (3)
  1. DILAUDID [Concomitant]
  2. REBIF [Suspect]
     Indication: RELAPSING-REMITTING MULTIPLE SCLEROSIS
     Dates: start: 20000208
  3. ACETAMINOPHEN [Concomitant]

REACTIONS (8)
  - LOSS OF CONSCIOUSNESS [None]
  - DEPRESSION [None]
  - BENIGN BONE NEOPLASM [None]
  - MULTIPLE SCLEROSIS RELAPSE [None]
  - STRESS [None]
  - PAIN IN EXTREMITY [None]
  - DYSPNOEA [None]
  - DRUG INEFFECTIVE [None]
